FAERS Safety Report 16289326 (Version 3)
Quarter: 2019Q2

REPORT INFORMATION
  Report Type: Spontaneous
  Country: US (occurrence: US)
  Receive Date: 20190509
  Receipt Date: 20190618
  Transmission Date: 20190711
  Serious: No
  Sender: FDA-Public Use
  Company Number: US-GW PHARMA-201901USGW0207

PATIENT

DRUGS (9)
  1. EPIDIOLEX [Suspect]
     Active Substance: CANNABIDIOL
     Dosage: DOSE DECREASED
     Route: 048
     Dates: start: 2019
  2. VITAMIN B6 [Concomitant]
     Active Substance: PYRIDOXINE HYDROCHLORIDE
     Indication: PRODUCT USED FOR UNKNOWN INDICATION
     Dosage: UNK
     Route: 065
  3. MULTIVITAMIN + MINERAL [Concomitant]
     Active Substance: MINERALS\VITAMINS
     Indication: PRODUCT USED FOR UNKNOWN INDICATION
     Dosage: UNK
     Route: 065
  4. TRILEPTAL [Concomitant]
     Active Substance: OXCARBAZEPINE
     Indication: PRODUCT USED FOR UNKNOWN INDICATION
     Dosage: 300 MG TABLETS, 1.5 TABLETS QAM, 1 TABLET AT NOON, 1.5 TABLETS QPM, 1200 MILLIGRAM, QD
     Route: 065
     Dates: start: 20110214
  5. DEPAKOTE [Concomitant]
     Active Substance: DIVALPROEX SODIUM
     Indication: PRODUCT USED FOR UNKNOWN INDICATION
     Dosage: 250 MG TABLETS, 1 QAM AND 2 QPM, 750 MILLIGRAM, QD
     Route: 065
     Dates: start: 20110214
  6. BANZEL [Concomitant]
     Active Substance: RUFINAMIDE
     Indication: PRODUCT USED FOR UNKNOWN INDICATION
     Dosage: 400 MG TABLETS, 1.5 TABLETS BID, 600 MILLIGRAM, BID
     Route: 065
     Dates: start: 20110215
  7. ZONEGRAN [Concomitant]
     Active Substance: ZONISAMIDE
     Indication: PRODUCT USED FOR UNKNOWN INDICATION
     Dosage: 100 MG CAPSULES, 2 QAM AND 3 QPM, 500 MILLIGRAM, QD
     Route: 065
     Dates: start: 20110214
  8. EPIDIOLEX [Suspect]
     Active Substance: CANNABIDIOL
     Indication: LENNOX-GASTAUT SYNDROME
     Dosage: WEEK 1: 1.3 ML ORALLY BID. WEEK 2:  2.6 ML BID. WEEK 3: 3.9ML BID. WEEK: 4 5.2 ML BID
     Route: 048
     Dates: start: 20190125, end: 2019
  9. ONFI [Concomitant]
     Active Substance: CLOBAZAM
     Indication: PRODUCT USED FOR UNKNOWN INDICATION
     Dosage: 10 MG TABLETS, 1 QAM AND 2 QPM, 30 MILLIGRAM, QD
     Route: 065
     Dates: start: 20120124

REACTIONS (3)
  - Somnolence [Recovering/Resolving]
  - Hypervigilance [Recovering/Resolving]
  - Seizure [Recovering/Resolving]

NARRATIVE: CASE EVENT DATE: 201901
